FAERS Safety Report 5799625-0 (Version None)
Quarter: 2008Q3

REPORT INFORMATION
  Report Type: 
  Country: None (occurrence: None)
  Receive Date: 20080701
  Receipt Date: 20080701
  Transmission Date: 20090109
  Serious: No
  Sender: FDA-Public Use
  Company Number: None

PATIENT
  Sex: Male

DRUGS (1)
  1. FOSAMAX [Suspect]
     Indication: OSTEOPOROSIS
     Dosage: 70MG EVERY WEEK BY MOUTH
     Route: 048
     Dates: start: 20080411

REACTIONS (4)
  - DIARRHOEA [None]
  - FAECES DISCOLOURED [None]
  - GASTRIC DISORDER [None]
  - PHARMACEUTICAL PRODUCT COUNTERFEIT [None]
